FAERS Safety Report 8386244-5 (Version None)
Quarter: 2012Q2

REPORT INFORMATION
  Report Type: 
  Country: None (occurrence: None)
  Receive Date: 20120525
  Receipt Date: 20120518
  Transmission Date: 20120825
  Serious: Yes (Other)
  Sender: FDA-Public Use
  Company Number: ES-PFIZER INC-2012121931

PATIENT
  Sex: Female

DRUGS (2)
  1. PEGVISOMANT [Suspect]
     Dosage: 15 MG, UNK
  2. PEGVISOMANT [Suspect]
     Dosage: 10 MG, UNK

REACTIONS (1)
  - LIPODYSTROPHY ACQUIRED [None]
